FAERS Safety Report 8545799-8 (Version None)
Quarter: 2012Q3

REPORT INFORMATION
  Report Type: 
  Country: None (occurrence: None)
  Receive Date: 20120727
  Receipt Date: 20120719
  Transmission Date: 20120928
  Serious: Yes (Other)
  Sender: FDA-Public Use
  Company Number: CN-BAXTER-2012BAX012148

PATIENT
  Sex: Male
  Weight: 44.5 kg

DRUGS (3)
  1. MANNITOL [Suspect]
     Route: 041
     Dates: start: 20090320, end: 20090323
  2. METHYLPREDNISOLONE [Suspect]
     Route: 041
     Dates: start: 20090320, end: 20090323
  3. HYZAAR [Suspect]
     Dates: start: 20090323, end: 20090323

REACTIONS (3)
  - RENAL IMPAIRMENT [None]
  - HYPOVOLAEMIA [None]
  - RENAL TUBULAR DISORDER [None]
